APPROVED DRUG PRODUCT: DRIXORAL PLUS
Active Ingredient: ACETAMINOPHEN; DEXBROMPHENIRAMINE MALEATE; PSEUDOEPHEDRINE SULFATE
Strength: 500MG;3MG;60MG
Dosage Form/Route: TABLET, EXTENDED RELEASE;ORAL
Application: N019453 | Product #001
Applicant: SCHERING PLOUGH HEALTHCARE PRODUCTS INC
Approved: May 22, 1987 | RLD: No | RS: No | Type: DISCN